FAERS Safety Report 6405896-X (Version None)
Quarter: 2009Q4

REPORT INFORMATION
  Report Type: 
  Country: None (occurrence: None)
  Receive Date: 20091016
  Receipt Date: 20091016
  Transmission Date: 20100525
  Serious: Yes (Life-Threatening, Hospitalization, Disabling, Other)
  Sender: FDA-Public Use
  Company Number: None

PATIENT
  Age: 66 Year
  Sex: Female
  Weight: 102.0593 kg

DRUGS (2)
  1. LORTAB [Suspect]
     Indication: PAIN
     Dosage: ZOLPIDEM -AMBIEN- 1 OR 2 AT BEDTIME
     Dates: start: 19850101, end: 20091013
  2. SOMA [Suspect]
     Indication: PAIN
     Dates: start: 19850101, end: 20091013

REACTIONS (3)
  - BLOOD PRESSURE DECREASED [None]
  - OVERDOSE [None]
  - RENAL FAILURE [None]
